FAERS Safety Report 4530560-1 (Version None)
Quarter: 2004Q4

REPORT INFORMATION
  Report Type: 
  Country: None (occurrence: None)
  Receive Date: 20041217
  Receipt Date: 20041217
  Transmission Date: 20050328
  Serious: Yes (Other)
  Sender: FDA-Public Use
  Company Number: None

PATIENT
  Age: 14 Year
  Sex: Female
  Weight: 64.4108 kg

DRUGS (1)
  1. SOTRET [Suspect]
     Indication: ACNE
     Dosage: 40 MG QOD  ORAL   ; 80 MG  ALTERNATE QOD ORAL
     Route: 048
     Dates: start: 20040816, end: 20041209

REACTIONS (1)
  - ALOPECIA [None]
